FAERS Safety Report 4619670-8 (Version None)
Quarter: 2005Q1

REPORT INFORMATION
  Report Type: 
  Country: None (occurrence: None)
  Receive Date: 20050324
  Receipt Date: 20050315
  Transmission Date: 20050727
  Serious: Yes (Hospitalization, Other)
  Sender: FDA-Public Use
  Company Number: 2005045691

PATIENT
  Age: 52 Year
  Sex: Female

DRUGS (6)
  1. ZYVOX [Suspect]
     Indication: PERITONITIS
     Dosage: 1200 MG (600 MG , BID), ORAL
     Route: 048
     Dates: start: 20050207, end: 20050221
  2. OXYCODONE (OXYCODONE) [Concomitant]
  3. VICODIN [Concomitant]
  4. FERROUS SULFATE 9FERROUS SULFATE) [Concomitant]
  5. PROMETHAZINE [Concomitant]
  6. BACTRIM [Concomitant]

REACTIONS (4)
  - HYPONATRAEMIA [None]
  - INADEQUATE DIET [None]
  - WEIGHT DECREASED [None]
  - WEIGHT INCREASED [None]
